FAERS Safety Report 7587805-3 (Version None)
Quarter: 2011Q3

REPORT INFORMATION
  Report Type: 
  Country: None (occurrence: None)
  Receive Date: 20110705
  Receipt Date: 20110623
  Transmission Date: 20111222
  Serious: No
  Sender: FDA-Public Use
  Company Number: US-BIOGENIDEC-2011BI023123

PATIENT
  Sex: Male

DRUGS (1)
  1. TYSABRI [Suspect]
     Indication: MULTIPLE SCLEROSIS
     Route: 042
     Dates: start: 20091016

REACTIONS (10)
  - MOBILITY DECREASED [None]
  - ROAD TRAFFIC ACCIDENT [None]
  - INSOMNIA [None]
  - SUICIDAL IDEATION [None]
  - PAIN [None]
  - FATIGUE [None]
  - LETHARGY [None]
  - HANGOVER [None]
  - MEMORY IMPAIRMENT [None]
  - DEPRESSION [None]
